FAERS Safety Report 16975167 (Version 1)
Quarter: 2019Q4

REPORT INFORMATION
  Report Type: Spontaneous
  Country: US (occurrence: US)
  Receive Date: 20191030
  Receipt Date: 20191030
  Transmission Date: 20200122
  Serious: No
  Sender: FDA-Public Use
  Company Number: US-ASTRAZENECA-2019SF40768

PATIENT
  Age: 57 Year
  Sex: Male

DRUGS (1)
  1. BYDUREON BCISE [Suspect]
     Active Substance: EXENATIDE
     Dosage: UNKNOWN
     Route: 065

REACTIONS (6)
  - Wound [Unknown]
  - Incorrect dose administered by device [Unknown]
  - Eye disorder [Unknown]
  - Device leakage [Unknown]
  - Injection site mass [Unknown]
  - Needle issue [Unknown]
